FAERS Safety Report 24657962 (Version 1)
Quarter: 2024Q4

REPORT INFORMATION
  Report Type: Spontaneous
  Country: US (occurrence: US)
  Receive Date: 20241125
  Receipt Date: 20241125
  Transmission Date: 20250115
  Serious: No
  Sender: Kenvue
  Company Number: US-KENVUE-20241032206

PATIENT
  Sex: Female

DRUGS (1)
  1. WOMENS ROGAINE [Suspect]
     Active Substance: MINOXIDIL
     Indication: Product used for unknown indication
     Dosage: TWICE A DAY
     Route: 061
     Dates: start: 2004, end: 2024

REACTIONS (2)
  - Seborrhoea [Unknown]
  - Therapeutic product effect incomplete [Unknown]
